FAERS Safety Report 8966516 (Version 1)
Quarter: 2012Q4

REPORT INFORMATION
  Report Type: 
  Country: FR (occurrence: FR)
  Receive Date: 20121217
  Receipt Date: 20121217
  Transmission Date: 20130627
  Serious: Yes (Hospitalization)
  Sender: FDA-Public Use
  Company Number: FR-BAYER-2012-130560

PATIENT
  Age: 61 Year
  Sex: Male

DRUGS (9)
  1. HELIXATE NEXGEN [Suspect]
     Indication: HEMATOMA
     Dosage: 1000 iu, UNK
     Route: 042
     Dates: start: 20121022, end: 20121022
  2. HELIXATE NEXGEN [Suspect]
     Indication: HEMOPHILIA A
     Dosage: 500 iu, UNK
     Route: 042
     Dates: start: 20121022, end: 20121022
  3. HELIXATE NEXGEN [Suspect]
     Indication: HEMATOMA
     Dosage: 2000 iu, UNK
     Route: 042
     Dates: start: 20121022, end: 20121022
  4. HELIXATE NEXGEN [Suspect]
     Indication: HEMATOMA
     Dosage: 3000 iu, every 8 hours
     Route: 042
     Dates: start: 20121023
  5. HELIXATE NEXGEN [Suspect]
     Indication: HEMATOMA
     Dosage: 2000 IU*2/day
     Route: 042
  6. HELIXATE NEXGEN [Suspect]
     Indication: HEMATOMA
     Dosage: 2000 IU/day
     Route: 042
     Dates: end: 20121026
  7. COAPROVEL [Concomitant]
  8. MOPRAL [Concomitant]
  9. CORTANCYL [Concomitant]
     Dosage: UNK
     Dates: start: 20121022

REACTIONS (3)
  - Acute coronary syndrome [Recovered/Resolved]
  - Dyspnoea [Recovered/Resolved]
  - Chest pain [Recovered/Resolved]
